FAERS Safety Report 13265331 (Version 2)
Quarter: 2017Q1

REPORT INFORMATION
  Report Type: Spontaneous
  Country: SE (occurrence: SE)
  Receive Date: 20170223
  Receipt Date: 20170314
  Transmission Date: 20170428
  Serious: Yes (Other)
  Sender: FDA-Public Use
  Company Number: SE-AMGEN-SWESP2017025724

PATIENT
  Age: 60 Year
  Sex: Female

DRUGS (13)
  1. CALCICHEW-D3 [Concomitant]
     Active Substance: CALCIUM\CHOLECALCIFEROL
  2. LOSARTAN. [Concomitant]
     Active Substance: LOSARTAN
     Dosage: UNK
  3. EMGESAN [Concomitant]
  4. ADPORT [Concomitant]
     Active Substance: TACROLIMUS
     Dosage: UNK
  5. URSOFALK [Concomitant]
     Active Substance: URSODIOL
     Dosage: UNK
  6. EMGESAN [Concomitant]
     Dosage: UNK
  7. PROLIA [Suspect]
     Active Substance: DENOSUMAB
     Indication: OSTEOPOROSIS
     Dosage: Q6MO
     Route: 065
     Dates: start: 201505, end: 20160531
  8. LOSARTAN. [Concomitant]
     Active Substance: LOSARTAN
  9. MYCOPHENOLATE MOFETIL ACCORD [Concomitant]
     Active Substance: MYCOPHENOLATE MOFETIL
     Dosage: UNK
  10. ADPORT [Concomitant]
     Active Substance: TACROLIMUS
  11. URSOFALK [Concomitant]
     Active Substance: URSODIOL
  12. CALCICHEW-D3 [Concomitant]
     Active Substance: CALCIUM\CHOLECALCIFEROL
     Dosage: UNK
  13. MYCOPHENOLATE MOFETIL ACCORD [Concomitant]
     Active Substance: MYCOPHENOLATE MOFETIL

REACTIONS (6)
  - Pain [Not Recovered/Not Resolved]
  - Joint stiffness [Not Recovered/Not Resolved]
  - Toothache [Not Recovered/Not Resolved]
  - Hypoaesthesia [Not Recovered/Not Resolved]
  - Vomiting [Not Recovered/Not Resolved]
  - Pyrexia [Not Recovered/Not Resolved]

NARRATIVE: CASE EVENT DATE: 2016
